FAERS Safety Report 9539294 (Version 1)
Quarter: 2013Q3

REPORT INFORMATION
  Report Type: Spontaneous
  Country: US (occurrence: None)
  Receive Date: 20130917
  Receipt Date: 20130917
  Transmission Date: 20140515
  Serious: Yes (Other)
  Sender: FDA-Public Use
  Company Number: ALK-2013-001945

PATIENT
  Age: 34 Year
  Sex: Female
  Weight: 52.2 kg

DRUGS (1)
  1. VIVITROL [Suspect]
     Indication: DRUG DEPENDENCE
     Route: 030
     Dates: start: 20130820

REACTIONS (1)
  - Ovarian cyst [None]
